FAERS Safety Report 7283991-3 (Version None)
Quarter: 2011Q1

REPORT INFORMATION
  Report Type: 
  Country: None (occurrence: None)
  Receive Date: 20110131
  Receipt Date: 20110114
  Transmission Date: 20110831
  Serious: Yes (Other)
  Sender: FDA-Public Use
  Company Number: 023072

PATIENT
  Sex: Female
  Weight: 57.2 kg

DRUGS (1)
  1. CIMZIA [Suspect]
     Indication: CROHN'S DISEASE
     Dosage: 400 MG 1X/4 WEEKS SUBCUTANEOUS
     Route: 058
     Dates: start: 20081024

REACTIONS (12)
  - RED BLOOD CELL COUNT DECREASED [None]
  - HAEMATOCRIT DECREASED [None]
  - BLOOD IRON DECREASED [None]
  - TRANSFERRIN SATURATION DECREASED [None]
  - BLOOD MAGNESIUM INCREASED [None]
  - SERUM FERRITIN DECREASED [None]
  - BLOOD CALCIUM DECREASED [None]
  - WHITE BLOOD CELL COUNT INCREASED [None]
  - ANASTOMOTIC ULCER HAEMORRHAGE [None]
  - HAEMOGLOBIN DECREASED [None]
  - NEUTROPHIL COUNT INCREASED [None]
  - RED CELL DISTRIBUTION WIDTH INCREASED [None]
